FAERS Safety Report 20087241 (Version 1)
Quarter: 2021Q4

REPORT INFORMATION
  Report Type: Spontaneous
  Country: US (occurrence: US)
  Receive Date: 20211118
  Receipt Date: 20211118
  Transmission Date: 20220303
  Serious: Yes (Other)
  Sender: FDA-Public Use
  Company Number: US-GLAXOSMITHKLINE-US2021GSK237761

PATIENT
  Sex: Male

DRUGS (14)
  1. ZANTAC [Suspect]
     Active Substance: RANITIDINE HYDROCHLORIDE
     Indication: Dyspepsia
     Dosage: 150 MG, QD  (3 - 4 PILLS PER DAY)
     Route: 065
     Dates: start: 201001, end: 201501
  2. ZANTAC [Suspect]
     Active Substance: RANITIDINE HYDROCHLORIDE
     Dosage: 300 MG, QD (3 - 4 PILLS PER DAY)
     Route: 065
     Dates: start: 201001, end: 201501
  3. ZANTAC [Suspect]
     Active Substance: RANITIDINE HYDROCHLORIDE
     Indication: Dyspepsia
     Dosage: 150 MG, QD  (3 - 4 PILLS PER DAY)
     Route: 065
     Dates: start: 201001, end: 201501
  4. ZANTAC [Suspect]
     Active Substance: RANITIDINE HYDROCHLORIDE
     Dosage: 300 MG, QD  (3 - 4 PILLS PER DAY)
     Route: 065
     Dates: start: 201001, end: 201501
  5. RANITIDINE HYDROCHLORIDE [Suspect]
     Active Substance: RANITIDINE HYDROCHLORIDE
     Indication: Dyspepsia
     Dosage: 150 MG, QD  (3 - 4 PILLS PER DAY)
     Route: 065
     Dates: start: 201001, end: 201501
  6. RANITIDINE HYDROCHLORIDE [Suspect]
     Active Substance: RANITIDINE HYDROCHLORIDE
     Dosage: 300 MG, QD  (3 - 4 PILLS PER DAY)
     Route: 065
     Dates: start: 201001, end: 201501
  7. RANITIDINE HYDROCHLORIDE [Suspect]
     Active Substance: RANITIDINE HYDROCHLORIDE
     Indication: Dyspepsia
     Dosage: 150 MG, QD  (3 - 4 PILLS PER DAY)
     Route: 065
     Dates: start: 201001, end: 201501
  8. RANITIDINE HYDROCHLORIDE [Suspect]
     Active Substance: RANITIDINE HYDROCHLORIDE
     Dosage: 300 MG, QD  (3 - 4 PILLS PER DAY)
     Route: 065
     Dates: start: 201001, end: 201501
  9. RANITIDINE [Suspect]
     Active Substance: RANITIDINE
     Indication: Dyspepsia
     Dosage: 150 MG, QD  (3 - 4 PILLS PER DAY)
     Route: 065
     Dates: start: 201001, end: 201501
  10. RANITIDINE [Suspect]
     Active Substance: RANITIDINE
     Dosage: 300 MG, QD  (3 - 4 PILLS PER DAY)
     Route: 065
     Dates: start: 201001, end: 201501
  11. RANITIDINE [Suspect]
     Active Substance: RANITIDINE
     Indication: Dyspepsia
     Dosage: 150 MG, QD  (3 - 4 PILLS PER DAY)
     Route: 065
     Dates: start: 201001, end: 201501
  12. RANITIDINE [Suspect]
     Active Substance: RANITIDINE
     Dosage: 300 MG, QD  (3 - 4 PILLS PER DAY)
     Route: 065
     Dates: start: 201001, end: 201501
  13. ZANTAC [Suspect]
     Active Substance: RANITIDINE HYDROCHLORIDE
     Indication: Dyspepsia
     Dosage: 150 MG, QD  (3 - 4 PILLS PER DAY)
     Route: 065
     Dates: start: 201001, end: 201501
  14. ZANTAC [Suspect]
     Active Substance: RANITIDINE HYDROCHLORIDE
     Dosage: 300 MG, QD  (3 - 4 PILLS PER DAY)
     Route: 065
     Dates: start: 201001, end: 201501

REACTIONS (1)
  - Oesophageal carcinoma [Unknown]
